FAERS Safety Report 7293663-7 (Version None)
Quarter: 2011Q1

REPORT INFORMATION
  Report Type: 
  Country: None (occurrence: None)
  Receive Date: 20110215
  Receipt Date: 20110208
  Transmission Date: 20110831
  Serious: Yes (Life-Threatening)
  Sender: FDA-Public Use
  Company Number: B0686990A

PATIENT
  Sex: Female

DRUGS (5)
  1. LANSOPRAZOLE [Concomitant]
     Indication: GASTROOESOPHAGEAL REFLUX DISEASE
     Dosage: 30MG PER DAY
     Route: 048
  2. ATENOLOL [Concomitant]
     Indication: HYPERTENSION
     Dosage: 50MG PER DAY
     Route: 048
  3. LEVOTHYROXINE SODIUM [Concomitant]
     Indication: HYPOTHYROIDISM
     Dosage: 125MCG PER DAY
     Route: 048
  4. AUGMENTIN '125' [Suspect]
     Indication: DIVERTICULITIS
     Route: 042
     Dates: start: 20101120, end: 20101120
  5. ASPIRIN [Concomitant]
     Dosage: 75MG PER DAY
     Route: 048

REACTIONS (2)
  - ANAPHYLACTIC REACTION [None]
  - CARDIAC ARREST [None]
